FAERS Safety Report 15602729 (Version 2)
Quarter: 2019Q1

REPORT INFORMATION
  Report Type: Spontaneous
  Country: US (occurrence: US)
  Receive Date: 20181109
  Receipt Date: 20190128
  Transmission Date: 20190417
  Serious: Yes (Other)
  Sender: FDA-Public Use
  Company Number: US-SA-2018SA307085

PATIENT
  Age: 59 Year
  Sex: Female
  Weight: 78 kg

DRUGS (14)
  1. FOSAPREPITANT [Concomitant]
     Active Substance: FOSAPREPITANT
  2. PALONOSETRON. [Concomitant]
     Active Substance: PALONOSETRON HYDROCHLORIDE
  3. HERCEPTIN [Concomitant]
     Active Substance: TRASTUZUMAB
  4. ASPIRIN [ACETYLSALICYLIC ACID] [Concomitant]
     Active Substance: ASPIRIN
  5. TAXOTERE [Suspect]
     Active Substance: DOCETAXEL
     Indication: BREAST CANCER FEMALE
     Dosage: 142 MG, Q3W
     Route: 042
     Dates: start: 20111013, end: 20111013
  6. PARAPLATIN [Concomitant]
     Active Substance: CARBOPLATIN
  7. TAXOTERE [Suspect]
     Active Substance: DOCETAXEL
     Dosage: 142 MG, Q3W
     Route: 042
     Dates: start: 20120202, end: 20120202
  8. KEFLEX [Concomitant]
     Active Substance: CEPHALEXIN
  9. MULTIVITAMINS [VITAMINS NOS] [Concomitant]
     Active Substance: VITAMINS
     Dosage: UNK
     Dates: start: 20000101
  10. OXYCONTIN [Concomitant]
     Active Substance: OXYCODONE HYDROCHLORIDE
     Dosage: UNK
     Dates: start: 20110101, end: 20121231
  11. RELAFEN [Concomitant]
     Active Substance: NABUMETONE
  12. CARBOPLATIN. [Concomitant]
     Active Substance: CARBOPLATIN
  13. FILGRASTIM [Concomitant]
     Active Substance: FILGRASTIM
  14. FISH OIL [Concomitant]
     Active Substance: FISH OIL

REACTIONS (1)
  - Alopecia [Not Recovered/Not Resolved]

NARRATIVE: CASE EVENT DATE: 20120802
